FAERS Safety Report 23844644 (Version 1)
Quarter: 2024Q2

REPORT INFORMATION
  Report Type: Spontaneous
  Country: CN (occurrence: CN)
  Receive Date: 20240511
  Receipt Date: 20240511
  Transmission Date: 20240716
  Serious: Yes (Life-Threatening, Hospitalization)
  Sender: FDA-Public Use
  Company Number: CN-BEIGENE-BGN-2024-007111

PATIENT

DRUGS (3)
  1. TISLELIZUMAB [Suspect]
     Active Substance: TISLELIZUMAB
     Indication: Keratinising squamous cell carcinoma of nasopharynx
     Dosage: 200 MILLIGRAM
     Route: 041
     Dates: start: 20240219
  2. CARBOPLATIN [Suspect]
     Active Substance: CARBOPLATIN
     Indication: Keratinising squamous cell carcinoma of nasopharynx
     Dosage: 380 MILLIGRAM
     Route: 041
     Dates: start: 20240220
  3. PACLITAXEL [Suspect]
     Active Substance: PACLITAXEL
     Indication: Keratinising squamous cell carcinoma of nasopharynx
     Dosage: 380 MILLIGRAM
     Route: 041
     Dates: start: 20240220

REACTIONS (1)
  - Myelosuppression [Recovered/Resolved]

NARRATIVE: CASE EVENT DATE: 20240226
